FAERS Safety Report 11789123 (Version 1)
Quarter: 2015Q4

REPORT INFORMATION
  Report Type: Spontaneous
  Country: US (occurrence: None)
  Receive Date: 20151130
  Receipt Date: 20151130
  Transmission Date: 20160305
  Serious: Yes (Disabling)
  Sender: FDA-Public Use
  Company Number: None

PATIENT
  Age: 55 Year
  Sex: Female
  Weight: 68.04 kg

DRUGS (10)
  1. ESTRADIOL. [Concomitant]
     Active Substance: ESTRADIOL
  2. ADDERALL [Concomitant]
     Active Substance: AMPHETAMINE ASPARTATE\AMPHETAMINE SULFATE\DEXTROAMPHETAMINE SACCHARATE\DEXTROAMPHETAMINE SULFATE
  3. CYMBALTA [Concomitant]
     Active Substance: DULOXETINE HYDROCHLORIDE
  4. LEVAQUIN [Suspect]
     Active Substance: LEVOFLOXACIN
     Indication: ACUTE SINUSITIS
     Dosage: 10
     Route: 048
     Dates: start: 20150805, end: 20150810
  5. SYNTHROID [Concomitant]
     Active Substance: LEVOTHYROXINE SODIUM
  6. MULTI [Concomitant]
  7. MNERALS [Concomitant]
  8. BIOTN [Concomitant]
  9. FIBER [Concomitant]
     Active Substance: PSYLLIUM HUSK
  10. LORTAB [Concomitant]
     Active Substance: ACETAMINOPHEN\HYDROCODONE BITARTRATE
     Indication: ACUTE SINUSITIS
     Dosage: 10

REACTIONS (5)
  - Tarsal tunnel syndrome [None]
  - Tendon disorder [None]
  - Neuropathy peripheral [None]
  - Activities of daily living impaired [None]
  - Pain in extremity [None]

NARRATIVE: CASE EVENT DATE: 20151110
